FAERS Safety Report 21504323 (Version 9)
Quarter: 2024Q4

REPORT INFORMATION
  Report Type: Report from Study
  Country: BR (occurrence: BR)
  Receive Date: 20221025
  Receipt Date: 20241224
  Transmission Date: 20250115
  Serious: Yes (Other)
  Sender: NOVARTIS
  Company Number: BR-NOVARTISPH-NVSC2022BR238435

PATIENT
  Age: 36 Year
  Sex: Female
  Weight: 85 kg

DRUGS (10)
  1. COSENTYX [Suspect]
     Active Substance: SECUKINUMAB
     Indication: Psoriatic arthropathy
     Dosage: UNK
     Route: 065
     Dates: start: 2020
  2. COSENTYX [Suspect]
     Active Substance: SECUKINUMAB
     Indication: Psoriasis
     Dosage: UNK, QW (2 PENS ATTACK DOSE) (INJECTION)
     Route: 065
     Dates: start: 20221017
  3. COSENTYX [Suspect]
     Active Substance: SECUKINUMAB
     Dosage: UNK (INJECTION)
     Route: 065
     Dates: start: 20221107
  4. COSENTYX [Suspect]
     Active Substance: SECUKINUMAB
     Dosage: UNK, QMO (INJECTION)
     Route: 065
     Dates: start: 202212
  5. COSENTYX [Suspect]
     Active Substance: SECUKINUMAB
     Dosage: 300 MG, UNKNOWN
     Route: 065
  6. VITAMIN D [Concomitant]
     Active Substance: VITAMIN D NOS
     Indication: Product used for unknown indication
     Dosage: UNK
     Route: 065
  7. OMEGA 3 [Concomitant]
     Active Substance: CAPSAICIN
     Indication: Product used for unknown indication
     Dosage: UNK
     Route: 065
  8. FLUOXETINE [Concomitant]
     Active Substance: FLUOXETINE HYDROCHLORIDE
     Indication: Product used for unknown indication
     Dosage: UNK
     Route: 065
  9. PREGABALIN [Concomitant]
     Active Substance: PREGABALIN
     Indication: Product used for unknown indication
     Dosage: UNK
     Route: 065
  10. CAFFEINE\DIPYRONE\ORPHENADRINE [Concomitant]
     Active Substance: CAFFEINE\DIPYRONE\ORPHENADRINE
     Indication: Product used for unknown indication
     Dosage: UNK
     Route: 065

REACTIONS (56)
  - Arrhythmia [Recovered/Resolved]
  - Spinal fracture [Unknown]
  - Arthritis [Not Recovered/Not Resolved]
  - Injection site pain [Not Recovered/Not Resolved]
  - Chills [Recovered/Resolved]
  - Blood pressure increased [Unknown]
  - Pruritus [Recovered/Resolved]
  - Nervousness [Unknown]
  - Malaise [Recovered/Resolved]
  - Hypotension [Not Recovered/Not Resolved]
  - Mood altered [Not Recovered/Not Resolved]
  - Feeling abnormal [Not Recovered/Not Resolved]
  - Crying [Not Recovered/Not Resolved]
  - Depression [Not Recovered/Not Resolved]
  - Arthralgia [Not Recovered/Not Resolved]
  - Muscular weakness [Not Recovered/Not Resolved]
  - Hypoaesthesia [Not Recovered/Not Resolved]
  - Muscle rigidity [Not Recovered/Not Resolved]
  - Pelvic pain [Not Recovered/Not Resolved]
  - Peripheral swelling [Unknown]
  - Paraesthesia [Unknown]
  - Chromaturia [Not Recovered/Not Resolved]
  - Joint swelling [Not Recovered/Not Resolved]
  - Pain in extremity [Not Recovered/Not Resolved]
  - Dry skin [Not Recovered/Not Resolved]
  - Psoriasis [Recovered/Resolved]
  - Skin wound [Recovering/Resolving]
  - Memory impairment [Not Recovered/Not Resolved]
  - Swelling face [Unknown]
  - Spinal pain [Unknown]
  - Neck pain [Unknown]
  - Nerve injury [Unknown]
  - Spinal osteoarthritis [Unknown]
  - Vulvovaginal dryness [Recovered/Resolved]
  - Weight increased [Unknown]
  - Influenza [Recovered/Resolved]
  - Malaise [Unknown]
  - Pain [Not Recovered/Not Resolved]
  - Chondropathy [Unknown]
  - Pruritus [Recovered/Resolved]
  - Inflammation [Unknown]
  - Swelling [Not Recovered/Not Resolved]
  - Drug withdrawal syndrome [Unknown]
  - Neuralgia [Unknown]
  - Depressed mood [Unknown]
  - Dermatitis [Unknown]
  - Emotional disorder [Unknown]
  - Anxiety [Unknown]
  - Dermatitis contact [Not Recovered/Not Resolved]
  - Psoriasis [Not Recovered/Not Resolved]
  - Hypoacusis [Not Recovered/Not Resolved]
  - Pruritus [Not Recovered/Not Resolved]
  - Pruritus genital [Not Recovered/Not Resolved]
  - Renal pain [Unknown]
  - Blood pressure decreased [Recovering/Resolving]
  - Ear disorder [Not Recovered/Not Resolved]

NARRATIVE: CASE EVENT DATE: 20221001
